FAERS Safety Report 18245976 (Version 1)
Quarter: 2020Q3

REPORT INFORMATION
  Report Type: Spontaneous
  Country: US (occurrence: US)
  Receive Date: 20200909
  Receipt Date: 20200909
  Transmission Date: 20201103
  Serious: No
  Sender: FDA-Public Use
  Company Number: US-ASTRAZENECA-2020SF06119

PATIENT
  Sex: Female

DRUGS (1)
  1. FARXIGA [Suspect]
     Active Substance: DAPAGLIFLOZIN PROPANEDIOL
     Dosage: 10.0MG UNKNOWN
     Route: 048

REACTIONS (8)
  - Skin irritation [Unknown]
  - Urinary tract infection [Unknown]
  - Cystitis [Unknown]
  - Bladder dysfunction [Unknown]
  - Bacterial vaginosis [Unknown]
  - Drug ineffective [Unknown]
  - Agitation [Unknown]
  - Thirst [Unknown]
